FAERS Safety Report 19439550 (Version 1)
Quarter: 2021Q2

REPORT INFORMATION
  Report Type: Spontaneous
  Country: VE (occurrence: VE)
  Receive Date: 20210619
  Receipt Date: 20210619
  Transmission Date: 20210717
  Serious: Yes (Death, Other)
  Sender: FDA-Public Use
  Company Number: VE-TAKEDA-2020TUS058285

PATIENT
  Age: 47 Year
  Sex: Male

DRUGS (2)
  1. ICLUSIG [Suspect]
     Active Substance: PONATINIB
     Indication: CHRONIC MYELOID LEUKAEMIA
     Dosage: 45 MILLIGRAM
     Route: 065
  2. ICLUSIG [Suspect]
     Active Substance: PONATINIB
     Dosage: 30 MILLIGRAM, QD
     Route: 065

REACTIONS (5)
  - Diarrhoea [Unknown]
  - Illness [Unknown]
  - Dry skin [Unknown]
  - Death [Fatal]
  - Generalised oedema [Unknown]

NARRATIVE: CASE EVENT DATE: 20210611
